FAERS Safety Report 9212042 (Version 1)
Quarter: 2013Q2

REPORT INFORMATION
  Report Type: Spontaneous
  Country: US (occurrence: US)
  Receive Date: 20130404
  Receipt Date: 20130404
  Transmission Date: 20140414
  Serious: No
  Sender: FDA-Public Use
  Company Number: US-AMGEN-USASP2013019189

PATIENT
  Age: 74 Year
  Sex: Male

DRUGS (2)
  1. ENBREL [Suspect]
     Indication: RHEUMATOID ARTHRITIS
     Dosage: 50 MG, QWK
     Dates: start: 2003, end: 2010
  2. ENBREL [Suspect]
     Indication: PSORIASIS

REACTIONS (2)
  - Rheumatoid arthritis [Not Recovered/Not Resolved]
  - Psoriasis [Not Recovered/Not Resolved]
